FAERS Safety Report 5073549-9 (Version None)
Quarter: 2006Q3

REPORT INFORMATION
  Report Type: 
  Country: None (occurrence: None)
  Receive Date: 20060717
  Receipt Date: 20051229
  Transmission Date: 20061208
  Serious: No
  Sender: FDA-Public Use
  Company Number: 2006000011

PATIENT
  Sex: Female

DRUGS (5)
  1. TARCEVA [Suspect]
     Indication: NON-SMALL CELL LUNG CANCER
     Dosage: 150 MG (QD), ORAL
     Route: 048
     Dates: start: 20050301
  2. ALIMTA [Concomitant]
  3. LEXAPRO [Concomitant]
  4. SINGULAIR [Concomitant]
  5. ELAVIL [Concomitant]

REACTIONS (4)
  - DRY SKIN [None]
  - HYPERTENSION [None]
  - NEUROPATHY PERIPHERAL [None]
  - SKIN IRRITATION [None]
